FAERS Safety Report 26005824 (Version 1)
Quarter: 2025Q4

REPORT INFORMATION
  Report Type: Spontaneous
  Country: GB (occurrence: GB)
  Receive Date: 20251106
  Receipt Date: 20251106
  Transmission Date: 20260118
  Serious: Yes (Other)
  Sender: AUROBINDO
  Company Number: GB-MHRA-TPP40270156C28132445YC1761220517279

PATIENT
  Age: 46 Year
  Sex: Female
  Weight: 82 kg

DRUGS (15)
  1. AMLODIPINE BESYLATE [Suspect]
     Active Substance: AMLODIPINE BESYLATE
     Indication: Ill-defined disorder
     Dosage: 5 MILLIGRAM, ONCE A DAY (TAKE ONE TABLET IN THE MORNING TO REDUCE BLOOD ...)
     Route: 065
     Dates: start: 20250930
  2. INDAPAMIDE [Concomitant]
     Active Substance: INDAPAMIDE
     Indication: Ill-defined disorder
     Dosage: 1 DOSAGE FORM, EVERY MORNING
     Route: 065
     Dates: start: 20251008
  3. ATORVASTATIN [Concomitant]
     Active Substance: ATORVASTATIN
     Indication: Ill-defined disorder
     Dosage: 1 DOSAGE FORM, DAILY
     Route: 065
     Dates: start: 20231025
  4. NOVORAPID [Concomitant]
     Active Substance: INSULIN ASPART
     Indication: Ill-defined disorder
     Dosage: UNK UNK, AS DIRECTED
     Route: 065
     Dates: start: 20231025, end: 20250911
  5. OMEPRAZOLE [Concomitant]
     Active Substance: OMEPRAZOLE
     Indication: Ill-defined disorder
     Dosage: 1 DOSAGE FORM IN THE MORNING BEFORE BREAKFAST
     Route: 065
     Dates: start: 20231025
  6. RAMIPRIL [Concomitant]
     Active Substance: RAMIPRIL
     Indication: Ill-defined disorder
     Dosage: 1 DOSAGE FORM, DAILY
     Route: 065
     Dates: start: 20231025
  7. FLUTICASONE PROPIONATE [Concomitant]
     Active Substance: FLUTICASONE PROPIONATE
     Indication: Ill-defined disorder
     Dosage: TWO SPRAYS IN EACH NOSTRIL DAILY
     Route: 065
     Dates: start: 20240516
  8. TRESIBA [Concomitant]
     Active Substance: INSULIN DEGLUDEC
     Indication: Ill-defined disorder
     Dosage: FOR SUBCUTANEOUS INJECTION, ACCORDING TO REQUIR...
     Route: 058
     Dates: start: 20240626
  9. CLOBETASONE BUTYRATE [Concomitant]
     Active Substance: CLOBETASONE BUTYRATE
     Indication: Ill-defined disorder
     Dosage: APPLY THINLY ONCE A DAY TO AFFECTED AREAS, FOR ...
     Route: 065
     Dates: start: 20240827
  10. HYPROMELLOSES [Concomitant]
     Active Substance: HYPROMELLOSES
     Indication: Ill-defined disorder
     Dosage: INSTILL  TO  EYES AS  OFTEN AS  NEEDED
     Route: 065
     Dates: start: 20240827
  11. SERTRALINE [Concomitant]
     Active Substance: SERTRALINE HYDROCHLORIDE
     Indication: Ill-defined disorder
     Dosage: TAKE ONE TABLET ONCE A DAY
     Route: 065
     Dates: start: 20240827
  12. TACROLIMUS [Concomitant]
     Active Substance: TACROLIMUS
     Indication: Ill-defined disorder
     Dosage: APPLY THINLY ONCE A DAY, AT NIGHT TIME, TO AFFE...
     Route: 065
     Dates: start: 20240827
  13. MOMETASONE [Concomitant]
     Active Substance: MOMETASONE
     Indication: Ill-defined disorder
     Dosage: APPLY DAILY TO BODY FOR 14 DAYS THEN ALTERNATE ...
     Route: 065
     Dates: start: 20250107
  14. GLUCAGON [Concomitant]
     Active Substance: GLUCAGON
     Indication: Ill-defined disorder
     Dosage: USE AS DIRECTED
     Route: 065
     Dates: start: 20250911
  15. INSULIN ASPART [Concomitant]
     Active Substance: INSULIN ASPART
     Indication: Ill-defined disorder
     Dosage: UNK UNK, AS DIRECTED
     Route: 065
     Dates: start: 20250923

REACTIONS (3)
  - Eye swelling [Recovered/Resolved]
  - Peripheral swelling [Recovered/Resolved]
  - Urticaria [Recovered/Resolved]

NARRATIVE: CASE EVENT DATE: 20251023
